FAERS Safety Report 26187756 (Version 1)
Quarter: 2025Q4

REPORT INFORMATION
  Report Type: Report from Study
  Country: US (occurrence: US)
  Receive Date: 20251222
  Receipt Date: 20251222
  Transmission Date: 20260118
  Serious: Yes (Hospitalization)
  Sender: JOHNSON AND JOHNSON
  Company Number: US-JNJFOC-20251220094

PATIENT
  Sex: Male

DRUGS (2)
  1. ABIRATERONE [Suspect]
     Active Substance: ABIRATERONE
     Indication: Hormone-dependent prostate cancer
     Route: 048
  2. ENZALUTAMIDE [Suspect]
     Active Substance: ENZALUTAMIDE
     Indication: Hormone-dependent prostate cancer

REACTIONS (10)
  - Acute respiratory failure [Unknown]
  - Cardiac failure acute [Unknown]
  - Chronic kidney disease [Unknown]
  - Sepsis [Unknown]
  - Acute kidney injury [Unknown]
  - Pneumonia [Unknown]
  - Diabetes mellitus [Unknown]
  - Atrial fibrillation [Unknown]
  - Hypertension [Unknown]
  - Urinary tract infection [Unknown]
